FAERS Safety Report 5417864-5 (Version None)
Quarter: 2007Q3

REPORT INFORMATION
  Report Type: 
  Country: None (occurrence: None)
  Receive Date: 20070815
  Receipt Date: 20070731
  Transmission Date: 20080115
  Serious: Yes (Death, Hospitalization)
  Sender: FDA-Public Use
  Company Number: 2007001255

PATIENT
  Age: 49 Year
  Sex: Male

DRUGS (6)
  1. TARCEVA [Suspect]
     Indication: LUNG NEOPLASM MALIGNANT
     Dosage: 150 MG (QD), ORAL
     Route: 048
     Dates: start: 20070415, end: 20070615
  2. TRANXENE [Concomitant]
  3. ESMEPRAZOLE (ESOMEPRAZOLE) [Concomitant]
  4. SOLU-MEDROL [Concomitant]
  5. FLECAINIDE ACETATE [Concomitant]
  6. VERAPAMIL [Concomitant]

REACTIONS (4)
  - CONDITION AGGRAVATED [None]
  - PULMONARY FIBROSIS [None]
  - RASH [None]
  - RESPIRATORY FAILURE [None]
